FAERS Safety Report 18473731 (Version 1)
Quarter: 2020Q4

REPORT INFORMATION
  Report Type: Spontaneous
  Country: QA (occurrence: QA)
  Receive Date: 20201106
  Receipt Date: 20201106
  Transmission Date: 20210114
  Serious: Yes (Hospitalization)
  Sender: FDA-Public Use
  Company Number: QA-AMNEAL PHARMACEUTICALS-2020-AMRX-03464

PATIENT
  Age: 45 Year
  Sex: Male

DRUGS (1)
  1. METFORMIN HYDROCHLORIDE ER [Suspect]
     Active Substance: METFORMIN HYDROCHLORIDE
     Indication: TYPE 2 DIABETES MELLITUS
     Dosage: 1 GRAM, 2 /DAY, FROM 6 YEARS
     Route: 065

REACTIONS (2)
  - Osmolar gap increased [Recovered/Resolved]
  - Lactic acidosis [Recovered/Resolved]
